FAERS Safety Report 18939863 (Version 1)
Quarter: 2021Q1

REPORT INFORMATION
  Report Type: Report from Study
  Country: None (occurrence: RO)
  Receive Date: 20210224
  Receipt Date: 20210224
  Transmission Date: 20210420
  Serious: Yes (Other)
  Sender: FDA-Public Use
  Company Number: RO-ABBVIE-21K-135-3786680-00

PATIENT
  Age: 64 Year
  Sex: Female

DRUGS (1)
  1. HUMIRA [Suspect]
     Active Substance: ADALIMUMAB
     Indication: CROHN^S DISEASE
     Route: 058
     Dates: start: 20200224, end: 20201229

REACTIONS (1)
  - Mycobacterium tuberculosis complex test positive [Not Recovered/Not Resolved]

NARRATIVE: CASE EVENT DATE: 202101
